FAERS Safety Report 23674733 (Version 1)
Quarter: 2024Q1

REPORT INFORMATION
  Report Type: Spontaneous
  Country: US (occurrence: US)
  Receive Date: 20240326
  Receipt Date: 20240326
  Transmission Date: 20240410
  Serious: No
  Sender: FDA-Public Use
  Company Number: US-EMERGENT BIOSOLUTIONS-24000039

PATIENT
  Sex: Male

DRUGS (8)
  1. CNJ-016 [Suspect]
     Active Substance: HUMAN VACCINIA VIRUS IMMUNE GLOBULIN
     Indication: Monkeypox
     Dosage: UNK
     Route: 065
  2. BRINCIDOFOVIR [Suspect]
     Active Substance: BRINCIDOFOVIR
     Indication: Monkeypox
     Dosage: UNK
     Route: 065
  3. TECOVIRIMAT [Concomitant]
     Active Substance: TECOVIRIMAT
     Indication: Monkeypox
     Dosage: UNK
     Route: 065
  4. CIDOFOVIR [Concomitant]
     Active Substance: CIDOFOVIR
     Indication: Monkeypox
     Dosage: UNK
     Route: 065
  5. CIDOFOVIR [Concomitant]
     Active Substance: CIDOFOVIR
     Dosage: UNK
     Route: 042
  6. CIDOFOVIR [Concomitant]
     Active Substance: CIDOFOVIR
     Dosage: 1 PERCENT IN MOISTURIZING SKIN CREAM, TWICE DAILY
     Route: 061
  7. CIDOFOVIR [Concomitant]
     Active Substance: CIDOFOVIR
     Dosage: 5 MG/ML IN NORMAL SALINE
     Route: 026
  8. CIDOFOVIR [Concomitant]
     Active Substance: CIDOFOVIR
     Dosage: 12 ML OF CIDOFOVIR PER SESSION, AT 1-WEEK INTERVALS
     Route: 026

REACTIONS (2)
  - Off label use [Unknown]
  - Drug ineffective for unapproved indication [Unknown]
